FAERS Safety Report 10591013 (Version 2)
Quarter: 2015Q1

REPORT INFORMATION
  Report Type: Report from Study
  Country: VE (occurrence: VE)
  Receive Date: 20141118
  Receipt Date: 20150306
  Transmission Date: 20150720
  Serious: Yes (Life-Threatening, Other)
  Sender: FDA-Public Use
  Company Number: PHHY2014VE150393

PATIENT
  Age: 55 Year
  Sex: Female

DRUGS (5)
  1. CENTRUM [Concomitant]
     Active Substance: VITAMINS
     Indication: VITAMIN SUPPLEMENTATION
     Dosage: QD
     Route: 065
     Dates: start: 201501
  2. ACLASTA [Suspect]
     Active Substance: ZOLEDRONIC ACID
     Indication: OSTEOPENIA
     Dosage: 5 MG, ANNUALLY
     Route: 042
     Dates: start: 20131211
  3. CALCIUM [Concomitant]
     Active Substance: CALCIUM
     Dosage: 1500 MG, QD
     Route: 065
  4. CALCIUM [Concomitant]
     Active Substance: CALCIUM
     Indication: OSTEOPENIA
     Dosage: UNK UNK, QW
     Route: 065
  5. IBUPROFEN. [Concomitant]
     Active Substance: IBUPROFEN
     Indication: MUSCLE RELAXANT THERAPY
     Dosage: 800 MG, QD
     Route: 065

REACTIONS (12)
  - Feeling abnormal [Recovering/Resolving]
  - Pyrexia [Recovered/Resolved]
  - Peripheral swelling [Recovered/Resolved]
  - Cervix disorder [Not Recovered/Not Resolved]
  - Malaise [Recovered/Resolved]
  - Pain in extremity [Recovered/Resolved]
  - Mass [Recovering/Resolving]
  - Chills [Recovered/Resolved]
  - Pain [Recovered/Resolved]
  - Vomiting [Recovered/Resolved]
  - Arthralgia [Recovered/Resolved]
  - Product use issue [Unknown]

NARRATIVE: CASE EVENT DATE: 201312
